FAERS Safety Report 8167034-5 (Version None)
Quarter: 2012Q1

REPORT INFORMATION
  Report Type: 
  Country: None (occurrence: None)
  Receive Date: 20120227
  Receipt Date: 20120224
  Transmission Date: 20120608
  Serious: Yes (Other)
  Sender: FDA-Public Use
  Company Number: US-PFIZER INC-2012050035

PATIENT
  Sex: Female

DRUGS (1)
  1. CHANTIX [Suspect]
     Dosage: UNK
     Route: 048
     Dates: start: 20120224

REACTIONS (6)
  - GAIT DISTURBANCE [None]
  - DIZZINESS [None]
  - FEAR [None]
  - ATAXIA [None]
  - PRESYNCOPE [None]
  - VISUAL IMPAIRMENT [None]
